FAERS Safety Report 5766931-5 (Version None)
Quarter: 2008Q2

REPORT INFORMATION
  Report Type: 
  Country: None (occurrence: None)
  Receive Date: 20080612
  Receipt Date: 20080602
  Transmission Date: 20081010
  Serious: Yes (Hospitalization, Other)
  Sender: FDA-Public Use
  Company Number: GB-JNJFOC-20080600469

PATIENT
  Sex: Female
  Weight: 100 kg

DRUGS (13)
  1. REMICADE [Suspect]
     Indication: BEHCET'S SYNDROME
  2. PREDNISOLONE [Concomitant]
  3. AMITRIPTYLINE HCL [Concomitant]
  4. ATENOLOL [Concomitant]
  5. BISACODYL [Concomitant]
  6. CITALOPRAM HYDROBROMIDE [Concomitant]
  7. CO-AMILOFRUSE [Concomitant]
  8. ETORICOXIB [Concomitant]
  9. FOLIC ACID [Concomitant]
  10. METHADONE HCL [Concomitant]
  11. OMEPRAZOLE [Concomitant]
  12. RAMIPRIL [Concomitant]
  13. AZATHIOPRINE [Concomitant]

REACTIONS (1)
  - BEHCET'S SYNDROME [None]
